FAERS Safety Report 24278275 (Version 1)
Quarter: 2024Q3

REPORT INFORMATION
  Report Type: Spontaneous
  Country: US (occurrence: None)
  Receive Date: 20240830
  Receipt Date: 20240830
  Transmission Date: 20241016
  Serious: Yes (Disabling, Other)
  Sender: Public
  Company Number: None

PATIENT
  Age: 43 Year
  Sex: Female
  Weight: 67.5 kg

DRUGS (11)
  1. LIPITOR [Suspect]
     Active Substance: ATORVASTATIN CALCIUM
     Indication: Blood cholesterol increased
     Dosage: OTHER QUANTITY : 1 TABLET(S);?
     Route: 048
  2. Albuteral sulfate inhalor [Concomitant]
  3. PIMECROLIMUS [Concomitant]
     Active Substance: PIMECROLIMUS
  4. VITAMINS [Concomitant]
     Active Substance: VITAMINS
  5. CALCIUM [Concomitant]
     Active Substance: CALCIUM
  6. VITAMIN D [Concomitant]
     Active Substance: VITAMIN D NOS
  7. METHYLCOBALAMIN [Concomitant]
     Active Substance: METHYLCOBALAMIN
  8. FISH OIL [Concomitant]
     Active Substance: FISH OIL
  9. FLAXSEED [Concomitant]
     Active Substance: FLAX SEED
  10. CINNAMON [Concomitant]
     Active Substance: CINNAMON
  11. COENZYME Q10 [Concomitant]
     Active Substance: DIETARY SUPPLEMENT\UBIDECARENONE

REACTIONS (5)
  - Brain fog [None]
  - Dizziness [None]
  - Impaired work ability [None]
  - Vertigo [None]
  - Blood pressure increased [None]

NARRATIVE: CASE EVENT DATE: 20110401
